FAERS Safety Report 19911129 (Version 8)
Quarter: 2022Q3

REPORT INFORMATION
  Report Type: Report from Study
  Country: US (occurrence: US)
  Receive Date: 20211004
  Receipt Date: 20220720
  Transmission Date: 20221026
  Serious: No
  Sender: FDA-Public Use
  Company Number: US-NOVARTISTESTPH-NVSC2021US222828

PATIENT
  Sex: Male

DRUGS (1)
  1. ENTRESTO [Suspect]
     Active Substance: SACUBITRIL\VALSARTAN
     Indication: Product used for unknown indication
     Dosage: 1 DOSAGE FORM (49/51 MG) BID
     Route: 048
     Dates: start: 202107

REACTIONS (4)
  - COVID-19 [Unknown]
  - Weight decreased [Unknown]
  - Hypotension [Unknown]
  - Dizziness postural [Unknown]
